FAERS Safety Report 6175717-1 (Version None)
Quarter: 2009Q2

REPORT INFORMATION
  Report Type: 
  Country: None (occurrence: None)
  Receive Date: 20090501
  Receipt Date: 20090430
  Transmission Date: 20091009
  Serious: Yes (Death)
  Sender: FDA-Public Use
  Company Number: CN-ASTRAZENECA-2009AP02948

PATIENT
  Age: 65 Year
  Sex: Male

DRUGS (5)
  1. LIDOCAINE [Suspect]
     Indication: MULTIPLE SCLEROSIS
     Route: 041
     Dates: start: 20080416, end: 20080417
  2. BACLOFEN [Concomitant]
     Indication: MULTIPLE SCLEROSIS
     Dates: start: 20080415
  3. CARBAMAZEPINE [Concomitant]
     Indication: MULTIPLE SCLEROSIS
     Dates: start: 20080415
  4. AMANTADINE HCL [Concomitant]
     Indication: MULTIPLE SCLEROSIS
     Dates: start: 20080415
  5. INDOMETHACIN [Concomitant]
     Indication: PYREXIA
     Route: 054
     Dates: start: 20080415

REACTIONS (1)
  - HYPERTHERMIA MALIGNANT [None]
